FAERS Safety Report 11412357 (Version 2)
Quarter: 2015Q4

REPORT INFORMATION
  Report Type: Spontaneous
  Country: US (occurrence: US)
  Receive Date: 20150824
  Receipt Date: 20151013
  Transmission Date: 20160304
  Serious: No
  Sender: FDA-Public Use
  Company Number: US-JNJFOC-20150723406

PATIENT
  Age: 53 Year
  Sex: Male
  Weight: 92.99 kg

DRUGS (6)
  1. MULTIVITAMINS [Concomitant]
     Active Substance: VITAMINS
     Indication: ROUTINE HEALTH MAINTENANCE
     Dosage: DAILY
     Route: 065
  2. SAW PALMETTO [Concomitant]
     Active Substance: SAW PALMETTO
     Indication: HAIR GROWTH ABNORMAL
     Route: 065
  3. PROPECIA [Concomitant]
     Active Substance: FINASTERIDE
     Indication: HAIR GROWTH ABNORMAL
     Dosage: DAILY 4 YEARS
     Route: 065
  4. MENS ROGAINE EXTRA STRENGTH [Suspect]
     Active Substance: MINOXIDIL
     Route: 061
  5. MENS ROGAINE EXTRA STRENGTH [Suspect]
     Active Substance: MINOXIDIL
     Indication: ALOPECIA
     Dosage: A SMALL AMOUNT
     Route: 061
     Dates: start: 20150718
  6. LOSARTAN. [Concomitant]
     Active Substance: LOSARTAN
     Indication: HYPERTENSION
     Dosage: 2 YEARS
     Route: 065

REACTIONS (4)
  - Incorrect dose administered [Unknown]
  - Acne [Recovered/Resolved]
  - Drug administered at inappropriate site [Unknown]
  - Wrong technique in product usage process [Unknown]

NARRATIVE: CASE EVENT DATE: 20150720
